FAERS Safety Report 11050509 (Version 1)
Quarter: 2015Q2

REPORT INFORMATION
  Report Type: Spontaneous
  Country: US (occurrence: None)
  Receive Date: 20150420
  Receipt Date: 20150420
  Transmission Date: 20150821
  Serious: Yes (Disabling)
  Sender: FDA-Public Use
  Company Number: None

PATIENT
  Age: 73 Year
  Sex: Female
  Weight: 49.9 kg

DRUGS (13)
  1. CQ 10 [Concomitant]
  2. AMLOPADINE [Concomitant]
  3. HCT2 [Concomitant]
  4. SPIRIVA INHALER [Concomitant]
  5. ADVAIR HFA [Concomitant]
     Active Substance: FLUTICASONE PROPIONATE\SALMETEROL XINAFOATE
  6. VITAMIN D [Concomitant]
     Active Substance: CHOLECALCIFEROL
  7. CALTRATE [Concomitant]
     Active Substance: CALCIUM CARBONATE
  8. PRO AIR INHALER [Concomitant]
  9. CENTRUM SILVER [Concomitant]
     Active Substance: VITAMINS
  10. ASPIRIN. [Concomitant]
     Active Substance: ASPIRIN
  11. SIMBASTIN [Concomitant]
  12. FISH OIL [Concomitant]
     Active Substance: FISH OIL
  13. LEVOFLOXACIN 500 MG MACLEODS PHARMACY [Suspect]
     Active Substance: LEVOFLOXACIN
     Indication: CHRONIC OBSTRUCTIVE PULMONARY DISEASE
     Dosage: 1 PILL ONCE DAILY TAKEN BY MOUTH
     Route: 048
     Dates: start: 20150316, end: 20150319

REACTIONS (9)
  - Tendon rupture [None]
  - Fear [None]
  - Toxicity to various agents [None]
  - Contraindicated drug administered [None]
  - Depression [None]
  - Joint swelling [None]
  - Drug dispensing error [None]
  - Rotator cuff syndrome [None]
  - Drug prescribing error [None]

NARRATIVE: CASE EVENT DATE: 20150316
